FAERS Safety Report 23531787 (Version 1)
Quarter: 2024Q1

REPORT INFORMATION
  Report Type: Spontaneous
  Country: US (occurrence: US)
  Receive Date: 20240216
  Receipt Date: 20240216
  Transmission Date: 20240410
  Serious: No
  Sender: FDA-Public Use
  Company Number: US-E2BLSMVVAL-SPO/USA/24/0002125

PATIENT
  Age: 56 Year
  Sex: Female

DRUGS (1)
  1. LIOTHYRONINE SODIUM [Suspect]
     Active Substance: LIOTHYRONINE SODIUM
     Indication: Thyroid disorder
     Dosage: ONCE DAY
     Dates: start: 20240115, end: 20240127

REACTIONS (4)
  - Peripheral swelling [Unknown]
  - Burning sensation [Unknown]
  - Pruritus [Unknown]
  - Tongue pruritus [Unknown]
